FAERS Safety Report 7376714-0 (Version None)
Quarter: 2011Q1

REPORT INFORMATION
  Report Type: 
  Country: None (occurrence: None)
  Receive Date: 20110325
  Receipt Date: 20101027
  Transmission Date: 20110831
  Serious: No
  Sender: FDA-Public Use
  Company Number: US-BAYER-2011-026119

PATIENT
  Sex: Female
  Weight: 55 kg

DRUGS (4)
  1. HYDROCODONE BITARTRATE [Concomitant]
  2. ALEVE [Suspect]
     Indication: ARTHRALGIA
     Dosage: BOTTLE COUNT 160S
  3. FUROSEMIDE [Concomitant]
  4. LOVASTATIN [Concomitant]

REACTIONS (1)
  - ARTHRALGIA [None]
